FAERS Safety Report 9461817 (Version 1)
Quarter: 2013Q3

REPORT INFORMATION
  Report Type: Spontaneous
  Country: US (occurrence: None)
  Receive Date: 20130815
  Receipt Date: 20130815
  Transmission Date: 20140515
  Serious: Yes (Disabling)
  Sender: FDA-Public Use
  Company Number: None

PATIENT
  Age: 54 Year
  Sex: Male
  Weight: 62.6 kg

DRUGS (3)
  1. ELIDEL [Suspect]
     Indication: ANORECTAL DISORDER
     Dosage: STRENGTH:  1%?QUANTITY:  ONE THIN LAYER?FREQUENCY:  ONCE A DAY OR LESS?HOW:  APPLIED TO ANUS?
     Route: 061
     Dates: start: 20111015, end: 20130810
  2. CYCLOBENZAPRINE [Concomitant]
  3. IBUPROFREN [Concomitant]

REACTIONS (2)
  - Pancreatitis acute [None]
  - Pancreatitis [None]
